FAERS Safety Report 19790089 (Version 1)
Quarter: 2021Q3

REPORT INFORMATION
  Report Type: Report from Study
  Country: None (occurrence: US)
  Receive Date: 20210905
  Receipt Date: 20210905
  Transmission Date: 20211014
  Serious: Yes (Other)
  Sender: FDA-Public Use
  Company Number: US-ABBVIE-21K-163-4066673-00

PATIENT
  Age: 44 Year
  Sex: Female

DRUGS (1)
  1. SKYRIZI [Suspect]
     Active Substance: RISANKIZUMAB-RZAA
     Indication: ILLNESS
     Route: 058
     Dates: end: 2021

REACTIONS (2)
  - Tonsillectomy [Unknown]
  - Illness [Unknown]

NARRATIVE: CASE EVENT DATE: 202107
